FAERS Safety Report 13467160 (Version 1)
Quarter: 2017Q2

REPORT INFORMATION
  Report Type: Spontaneous
  Country: US (occurrence: US)
  Receive Date: 20170421
  Receipt Date: 20170421
  Transmission Date: 20170830
  Serious: Yes (Hospitalization)
  Sender: FDA-Public Use
  Company Number: US-OREXIGEN THERAPEUTICS, INC.-1065629

PATIENT
  Sex: Female

DRUGS (1)
  1. CONTRAVE [Suspect]
     Active Substance: BUPROPION HYDROCHLORIDE\NALTREXONE HYDROCHLORIDE
     Indication: PRODUCT USED FOR UNKNOWN INDICATION
     Route: 065

REACTIONS (12)
  - Anxiety [Unknown]
  - Vertigo [Unknown]
  - Heart rate increased [Unknown]
  - Hyperhidrosis [Unknown]
  - Feeling drunk [Unknown]
  - Speech disorder [Unknown]
  - Visual impairment [Unknown]
  - Feeling abnormal [Unknown]
  - Vomiting [Unknown]
  - Adverse event [Unknown]
  - Loss of consciousness [Unknown]
  - Gait disturbance [Unknown]
